FAERS Safety Report 14190589 (Version 2)
Quarter: 2018Q1

REPORT INFORMATION
  Report Type: Spontaneous
  Country: SE (occurrence: SE)
  Receive Date: 20171115
  Receipt Date: 20180306
  Transmission Date: 20180508
  Serious: Yes (Hospitalization, Other)
  Sender: FDA-Public Use
  Company Number: SE-JNJFOC-20171106344

PATIENT
  Age: 16 Year
  Sex: Male

DRUGS (8)
  1. RISPERDAL [Suspect]
     Active Substance: RISPERIDONE
     Indication: ANXIETY
     Dosage: 1-1.5 YEARS AGO
     Route: 048
     Dates: start: 2016, end: 201711
  2. RISPERDAL [Suspect]
     Active Substance: RISPERIDONE
     Indication: AUTISM SPECTRUM DISORDER
     Dosage: UP TO 40 TABLETS
     Route: 048
     Dates: start: 20171105, end: 20171105
  3. RISPERDAL [Suspect]
     Active Substance: RISPERIDONE
     Indication: ATTENTION DEFICIT/HYPERACTIVITY DISORDER
     Dosage: 1-1.5 YEARS AGO
     Route: 048
     Dates: start: 2016, end: 201711
  4. RISPERDAL [Suspect]
     Active Substance: RISPERIDONE
     Indication: ANXIETY
     Dosage: UP TO 40 TABLETS
     Route: 048
     Dates: start: 20171105, end: 20171105
  5. RISPERDAL [Suspect]
     Active Substance: RISPERIDONE
     Indication: ATTENTION DEFICIT/HYPERACTIVITY DISORDER
     Dosage: UP TO 40 TABLETS
     Route: 048
     Dates: start: 20171105, end: 20171105
  6. SERTRALINE [Concomitant]
     Active Substance: SERTRALINE HYDROCHLORIDE
     Dosage: 50 OR 100 MG
     Route: 065
  7. ELVANSE [Concomitant]
     Active Substance: LISDEXAMFETAMINE DIMESYLATE
     Dosage: PROBABLY 30 MG
     Route: 065
  8. RISPERDAL [Suspect]
     Active Substance: RISPERIDONE
     Indication: AUTISM SPECTRUM DISORDER
     Dosage: 1-1.5 YEARS AGO
     Route: 048
     Dates: start: 2016, end: 201711

REACTIONS (5)
  - Intentional overdose [Unknown]
  - Toxicity to various agents [Unknown]
  - Muscle spasms [Recovered/Resolved]
  - Depressed mood [Unknown]
  - Neurological symptom [Unknown]

NARRATIVE: CASE EVENT DATE: 201711
